FAERS Safety Report 7304718-2 (Version None)
Quarter: 2011Q1

REPORT INFORMATION
  Report Type: 
  Country: None (occurrence: None)
  Receive Date: 20110222
  Receipt Date: 20110209
  Transmission Date: 20110831
  Serious: No
  Sender: FDA-Public Use
  Company Number: US-PFIZER INC-US-WYE-H15018610

PATIENT
  Sex: Female
  Weight: 54.4 kg

DRUGS (3)
  1. KLONOPIN [Concomitant]
     Dosage: UNK
  2. PRISTIQ [Suspect]
     Indication: DEPRESSION
     Dosage: 50 MG, 1X/DAY
     Dates: start: 20100506
  3. ZOLOFT [Suspect]
     Indication: DEPRESSION
     Dosage: UNK

REACTIONS (3)
  - DIARRHOEA [None]
  - DRUG INEFFECTIVE [None]
  - NAUSEA [None]
